FAERS Safety Report 8560482 (Version 2)
Quarter: 2017Q1

REPORT INFORMATION
  Report Type: Report from Study
  Country: GB (occurrence: GB)
  Receive Date: 20120514
  Receipt Date: 20170210
  Transmission Date: 20170429
  Serious: Yes (Hospitalization, Other)
  Sender: FDA-Public Use
  Company Number: GB-ROCHE-1068207

PATIENT
  Age: 56 Year
  Sex: Female
  Weight: 49 kg

DRUGS (6)
  1. TIOTROPIUM BROMIDE [Concomitant]
     Active Substance: TIOTROPIUM BROMIDE
  2. RITUXIMAB [Suspect]
     Active Substance: RITUXIMAB
     Indication: RHEUMATOID ARTHRITIS
     Route: 042
     Dates: start: 20091218
  3. SALBUTAMOL [Concomitant]
     Active Substance: ALBUTEROL
  4. METHOTREXATE. [Concomitant]
     Active Substance: METHOTREXATE
     Indication: RHEUMATOID ARTHRITIS
  5. FOLIC ACID. [Concomitant]
     Active Substance: FOLIC ACID
  6. AZATHIOPRINE. [Concomitant]
     Active Substance: AZATHIOPRINE
     Route: 065
     Dates: start: 20091112

REACTIONS (5)
  - Chronic obstructive pulmonary disease [Unknown]
  - Stress cardiomyopathy [Recovered/Resolved]
  - Rheumatoid nodule [Unknown]
  - Infective exacerbation of chronic obstructive airways disease [Recovered/Resolved]
  - Ill-defined disorder [Recovered/Resolved]

NARRATIVE: CASE EVENT DATE: 20101227
